FAERS Safety Report 6262171-4 (Version None)
Quarter: 2009Q3

REPORT INFORMATION
  Report Type: 
  Country: None (occurrence: None)
  Receive Date: 20090708
  Receipt Date: 20090708
  Transmission Date: 20100115
  Serious: Yes (Other)
  Sender: FDA-Public Use
  Company Number: None

PATIENT
  Sex: Female

DRUGS (1)
  1. VESICARE [Suspect]
     Indication: URINARY RETENTION
     Dosage: 1 PER DAY
     Dates: start: 20090501, end: 20090601

REACTIONS (2)
  - COLOUR BLINDNESS ACQUIRED [None]
  - VISION BLURRED [None]
